FAERS Safety Report 17335950 (Version 1)
Quarter: 2020Q1

REPORT INFORMATION
  Report Type: Other
  Country: DE (occurrence: DE)
  Receive Date: 20200129
  Receipt Date: 20200129
  Transmission Date: 20200409
  Serious: Yes (Other)
  Sender: FDA-Public Use
  Company Number: DE-AUROBINDO-AUR-APL-2014-02700

PATIENT
  Sex: Female

DRUGS (7)
  1. RAMIPRIL AUROBINDO 2.5MG, TABLETS [Suspect]
     Active Substance: RAMIPRIL
     Indication: HYPERTENSION
     Dosage: 2.5 MG,ONCE A DAY,
     Route: 048
     Dates: start: 20120813
  2. SIMVASTATIN AUROBINDO FILMTABLETTEN 5MG [Suspect]
     Active Substance: SIMVASTATIN
     Indication: HYPERLIPIDAEMIA
     Dosage: UNK UNK,UNK,
     Route: 048
     Dates: start: 20120813, end: 20121001
  3. OMEPRAZOLE. [Concomitant]
     Active Substance: OMEPRAZOLE
     Indication: GASTRITIS PROPHYLAXIS
     Dosage: 40 MG,TWO TIMES A DAY,
     Route: 048
     Dates: start: 20120813, end: 20121001
  4. MOLSIDOMINE [Suspect]
     Active Substance: MOLSIDOMINE
     Indication: CORONARY ARTERY DISEASE
     Dosage: UNK UNK,TWO TIMES A DAY,
     Route: 048
     Dates: start: 20120813, end: 20121001
  5. HERZ ASS [Concomitant]
     Active Substance: ASPIRIN
     Indication: THROMBOSIS PROPHYLAXIS
     Dosage: 100 MG,ONCE A DAY,
     Route: 048
     Dates: start: 20120813, end: 20121001
  6. METOPROLOL. [Concomitant]
     Active Substance: METOPROLOL
     Indication: HYPERTENSION
     Dosage: 50 MG,ONCE A DAY,
     Route: 048
     Dates: start: 20120813, end: 20121001
  7. CLOPIDOGREL [Suspect]
     Active Substance: CLOPIDOGREL BISULFATE
     Indication: THROMBOSIS PROPHYLAXIS
     Dosage: 75 MG,ONCE A DAY,
     Route: 048
     Dates: start: 20120813, end: 20121001

REACTIONS (3)
  - Off label use [Unknown]
  - Abortion missed [Recovered/Resolved]
  - Exposure during pregnancy [Unknown]
